FAERS Safety Report 13783289 (Version 1)
Quarter: 2017Q3

REPORT INFORMATION
  Report Type: Spontaneous
  Country: MY (occurrence: MY)
  Receive Date: 20170724
  Receipt Date: 20170724
  Transmission Date: 20171127
  Serious: Yes (Other)
  Sender: FDA-Public Use
  Company Number: MY-PFIZER INC-2017320279

PATIENT
  Age: 69 Year
  Sex: Female

DRUGS (1)
  1. DILANTIN [Suspect]
     Active Substance: PHENYTOIN
     Indication: CEREBRAL INFARCTION
     Dosage: 100 MG, UNK
     Route: 048

REACTIONS (3)
  - Rash macular [Recovering/Resolving]
  - Angioedema [Recovered/Resolved]
  - Product use in unapproved indication [Unknown]
